FAERS Safety Report 17774347 (Version 1)
Quarter: 2020Q2

REPORT INFORMATION
  Report Type: Spontaneous
  Country: US (occurrence: US)
  Receive Date: 20200513
  Receipt Date: 20200513
  Transmission Date: 20200714
  Serious: Yes (Other)
  Sender: FDA-Public Use
  Company Number: US-ROCHE-2593096

PATIENT
  Age: 59 Year
  Sex: Female
  Weight: 74.46 kg

DRUGS (1)
  1. OCREVUS [Suspect]
     Active Substance: OCRELIZUMAB
     Indication: SECONDARY PROGRESSIVE MULTIPLE SCLEROSIS
     Route: 065
     Dates: start: 2016

REACTIONS (6)
  - Immunosuppression [Unknown]
  - Chills [Recovered/Resolved]
  - Multiple sclerosis relapse [Unknown]
  - Eczema [Recovering/Resolving]
  - Osteoporosis [Not Recovered/Not Resolved]
  - Myalgia [Unknown]

NARRATIVE: CASE EVENT DATE: 201710
